FAERS Safety Report 8034381-7 (Version None)
Quarter: 2012Q1

REPORT INFORMATION
  Report Type: 
  Country: None (occurrence: None)
  Receive Date: 20120110
  Receipt Date: 20120103
  Transmission Date: 20120608
  Serious: Yes (Other)
  Sender: FDA-Public Use
  Company Number: SE-AMGEN-SWESP2011037633

PATIENT
  Age: 64 Year
  Sex: Female
  Weight: 43 kg

DRUGS (6)
  1. GAVISCON                           /00237601/ [Concomitant]
  2. PROLIA [Suspect]
     Indication: OSTEOPOROSIS POSTMENOPAUSAL
     Dosage: 60 MG, ONE TIME DOSE
     Route: 058
     Dates: start: 20110301
  3. CALCIUM ACETATE [Concomitant]
  4. VITAMIN D [Concomitant]
  5. ACETAMINOPHEN [Concomitant]
  6. NOVALUCOL                          /00018001/ [Concomitant]

REACTIONS (32)
  - ABDOMINAL PAIN UPPER [None]
  - DRY SKIN [None]
  - PAIN [None]
  - PRURITUS [None]
  - ASTHENIA [None]
  - FEELING ABNORMAL [None]
  - RASH [None]
  - PARAESTHESIA [None]
  - FIBROMYALGIA [None]
  - ARTHRALGIA [None]
  - HEADACHE [None]
  - DIZZINESS [None]
  - ABNORMAL FAECES [None]
  - EAR DISCOMFORT [None]
  - GROIN PAIN [None]
  - DYSPNOEA [None]
  - GAIT DISTURBANCE [None]
  - FLUID RETENTION [None]
  - CONSTIPATION [None]
  - DYSURIA [None]
  - WEIGHT DECREASED [None]
  - RENAL PAIN [None]
  - URINARY RETENTION [None]
  - EATING DISORDER [None]
  - SCIATICA [None]
  - HYPOAESTHESIA [None]
  - POLLAKIURIA [None]
  - INCONTINENCE [None]
  - INJECTION SITE INDURATION [None]
  - HEAD DISCOMFORT [None]
  - PAIN IN EXTREMITY [None]
  - NAUSEA [None]
